FAERS Safety Report 17616397 (Version 1)
Quarter: 2020Q2

REPORT INFORMATION
  Report Type: Spontaneous
  Country: US (occurrence: US)
  Receive Date: 20200402
  Receipt Date: 20200402
  Transmission Date: 20200713
  Serious: No
  Sender: FDA-Public Use
  Company Number: US-AMGEN-USASP2020051108

PATIENT
  Sex: Female
  Weight: 66.6 kg

DRUGS (1)
  1. MVASI [Suspect]
     Active Substance: BEVACIZUMAB-AWWB
     Indication: OVARIAN CANCER
     Dosage: 500 MILLIGRAM, Q2WK
     Route: 065
     Dates: start: 20200113

REACTIONS (1)
  - Off label use [Unknown]
